FAERS Safety Report 5646143-6 (Version None)
Quarter: 2008Q1

REPORT INFORMATION
  Report Type: 
  Country: None (occurrence: None)
  Receive Date: 20080229
  Receipt Date: 20080219
  Transmission Date: 20080703
  Serious: Yes (Hospitalization, Other)
  Sender: FDA-Public Use
  Company Number: US-PFIZER INC-2008017081

PATIENT
  Sex: Female
  Weight: 50 kg

DRUGS (2)
  1. CHANTIX [Suspect]
     Indication: EX-SMOKER
     Dates: start: 20070908, end: 20070901
  2. TOPAMAX [Concomitant]

REACTIONS (4)
  - CHEST PAIN [None]
  - HYPOAESTHESIA [None]
  - MYOCARDIAL INFARCTION [None]
  - STRESS [None]
